FAERS Safety Report 13930378 (Version 2)
Quarter: 2017Q3

REPORT INFORMATION
  Report Type: Spontaneous
  Country: US (occurrence: US)
  Receive Date: 20170901
  Receipt Date: 20170912
  Transmission Date: 20171127
  Serious: Yes (Hospitalization, Other)
  Sender: FDA-Public Use
  Company Number: US-MYLANLABS-2017M1055288

PATIENT
  Age: 54 Year
  Sex: Male

DRUGS (6)
  1. LITHIUM. [Suspect]
     Active Substance: LITHIUM
     Indication: PRODUCT USED FOR UNKNOWN INDICATION
  2. CLOZAPINE. [Suspect]
     Active Substance: CLOZAPINE
     Indication: PRODUCT USED FOR UNKNOWN INDICATION
     Dosage: UNK
  3. PRIMIDONE. [Concomitant]
     Active Substance: PRIMIDONE
     Indication: PRODUCT USED FOR UNKNOWN INDICATION
     Dosage: UNK
  4. OSELTAMIVIR [Suspect]
     Active Substance: OSELTAMIVIR
     Indication: INFLUENZA
  5. FLUOXETINE [Suspect]
     Active Substance: FLUOXETINE HYDROCHLORIDE
     Indication: PRODUCT USED FOR UNKNOWN INDICATION
     Dosage: UNK
  6. PROPRANOLOL [Concomitant]
     Active Substance: PROPRANOLOL HYDROCHLORIDE
     Indication: PRODUCT USED FOR UNKNOWN INDICATION

REACTIONS (12)
  - Metapneumovirus infection [Unknown]
  - Mental status changes [Recovering/Resolving]
  - Clonus [Recovering/Resolving]
  - Pyrexia [Unknown]
  - Hyperreflexia [Recovering/Resolving]
  - Antipsychotic drug level below therapeutic [Unknown]
  - Serotonin syndrome [Recovered/Resolved]
  - Toxicity to various agents [Unknown]
  - Tremor [Unknown]
  - Muscle rigidity [Unknown]
  - Labelled drug-drug interaction medication error [Unknown]
  - Drug screen positive [Unknown]
